FAERS Safety Report 6394424-3 (Version None)
Quarter: 2009Q4

REPORT INFORMATION
  Report Type: 
  Country: None (occurrence: None)
  Receive Date: 20091006
  Receipt Date: 20091001
  Transmission Date: 20100525
  Serious: Yes (Death)
  Sender: FDA-Public Use
  Company Number: 1000008781

PATIENT
  Age: 64 Year
  Sex: Female

DRUGS (4)
  1. LEXAPRO [Suspect]
     Indication: DEPRESSION
     Dosage: 5 MG (5MG, 1 IN 1 D), ORAL
     Route: 048
  2. LEXAPRO [Suspect]
     Indication: DEPRESSION
     Dosage: 10 MG (10 MG, 1 IN 1 D), ORAL
     Route: 048
     Dates: start: 20090701, end: 20090721
  3. CYMBALTA [Suspect]
     Indication: DEPRESSION
     Dosage: 20 MG, ORAL
     Route: 048
     Dates: start: 20090717, end: 20090723
  4. KLONOPIN [Concomitant]

REACTIONS (5)
  - ABDOMINAL DISTENSION [None]
  - COMPLETED SUICIDE [None]
  - DIARRHOEA [None]
  - NAUSEA [None]
  - STRESS [None]
